FAERS Safety Report 7006890-0 (Version None)
Quarter: 2010Q3

REPORT INFORMATION
  Report Type: 
  Country: None (occurrence: None)
  Receive Date: 20100922
  Receipt Date: 20100913
  Transmission Date: 20110219
  Serious: Yes (Other)
  Sender: FDA-Public Use
  Company Number: US-ELI_LILLY_AND_COMPANY-US201009003555

PATIENT
  Sex: Female

DRUGS (3)
  1. HUMALOG [Suspect]
     Indication: TYPE 2 DIABETES MELLITUS
     Dosage: 20 U, AS NEEDED
     Dates: start: 20070913
  2. HUMALOG [Suspect]
     Dosage: 20 U, AS NEEDED
  3. LANTUS [Concomitant]

REACTIONS (2)
  - BLINDNESS [None]
  - INSULIN RESISTANCE [None]
